FAERS Safety Report 19973486 (Version 3)
Quarter: 2025Q2

REPORT INFORMATION
  Report Type: Spontaneous
  Country: US (occurrence: US)
  Receive Date: 20211020
  Receipt Date: 20250603
  Transmission Date: 20250717
  Serious: Yes (Life-Threatening, Hospitalization, Other)
  Sender: AUROBINDO
  Company Number: US-MLMSERVICE-20210929-2900243-1

PATIENT
  Age: 8 Year
  Sex: Female
  Weight: 21.5 kg

DRUGS (11)
  1. VANCOMYCIN [Suspect]
     Active Substance: VANCOMYCIN
     Indication: Prophylaxis
     Route: 042
     Dates: start: 20200910, end: 20200910
  2. FENTANYL [Concomitant]
     Active Substance: FENTANYL
     Indication: Sedation
     Route: 042
  3. LIDOCAINE [Concomitant]
     Active Substance: LIDOCAINE
     Indication: Sedation
     Route: 040
  4. LIDOCAINE [Concomitant]
     Active Substance: LIDOCAINE
     Route: 041
  5. LIDOCAINE [Concomitant]
     Active Substance: LIDOCAINE
  6. MIDAZOLAM [Concomitant]
     Active Substance: MIDAZOLAM
     Indication: Anxiolytic therapy
     Route: 048
  7. NITROUS OXIDE [Concomitant]
     Active Substance: NITROUS OXIDE
     Indication: Induction of anaesthesia
     Route: 055
  8. PROPOFOL [Concomitant]
     Active Substance: PROPOFOL
     Indication: Sedation
     Route: 040
  9. PROPOFOL [Concomitant]
     Active Substance: PROPOFOL
     Route: 041
  10. REMIFENTANIL [Concomitant]
     Active Substance: REMIFENTANIL
     Indication: Sedation
     Route: 042
  11. SEVOFLURANE [Concomitant]
     Active Substance: SEVOFLURANE
     Indication: Induction of anaesthesia
     Route: 055

REACTIONS (3)
  - Cardiac arrest [Recovered/Resolved]
  - Anaphylactic reaction [Recovered/Resolved]
  - Hypotension [Recovered/Resolved]

NARRATIVE: CASE EVENT DATE: 20200910
